FAERS Safety Report 7205496-8 (Version None)
Quarter: 2010Q4

REPORT INFORMATION
  Report Type: 
  Country: None (occurrence: None)
  Receive Date: 20101231
  Receipt Date: 20101221
  Transmission Date: 20110411
  Serious: Yes (Hospitalization)
  Sender: FDA-Public Use
  Company Number: MX-SANOFI-AVENTIS-2010SA077258

PATIENT
  Age: 76 Year
  Sex: Female
  Weight: 72 kg

DRUGS (3)
  1. PLAVIX [Suspect]
     Indication: THROMBOSIS PROPHYLAXIS
     Route: 048
     Dates: start: 20100601, end: 20101130
  2. METFORMIN HCL [Concomitant]
     Route: 048
     Dates: start: 20040101
  3. MICARDIS [Concomitant]
     Route: 048
     Dates: start: 20090101

REACTIONS (6)
  - ANAEMIA [None]
  - HAEMATEMESIS [None]
  - HIATUS HERNIA [None]
  - MELAENA [None]
  - OFF LABEL USE [None]
  - UPPER GASTROINTESTINAL HAEMORRHAGE [None]
